FAERS Safety Report 8726285 (Version 4)
Quarter: 2012Q4

REPORT INFORMATION
  Report Type: 
  Country: US (occurrence: US)
  Receive Date: 20120816
  Receipt Date: 20121106
  Transmission Date: 20130627
  Serious: Yes (Other)
  Sender: FDA-Public Use
  Company Number: PHEH2012US015735

PATIENT
  Sex: Female

DRUGS (2)
  1. DIOVAN [Suspect]
     Dosage: 160 mg, QD
     Route: 048
  2. LISINOPRIL [Suspect]

REACTIONS (5)
  - Haemorrhage [Unknown]
  - Hot flush [Unknown]
  - Dysgeusia [Unknown]
  - Myalgia [Unknown]
  - Fatigue [Unknown]
